FAERS Safety Report 5008002-1 (Version None)
Quarter: 2006Q2

REPORT INFORMATION
  Report Type: 
  Country: None (occurrence: None)
  Receive Date: 20060404
  Receipt Date: 20050606
  Transmission Date: 20061013
  Serious: Yes (Hospitalization)
  Sender: FDA-Public Use
  Company Number: 2005046662

PATIENT
  Age: 39 Year
  Sex: Female

DRUGS (4)
  1. GEODON [Suspect]
     Indication: BIPOLAR I DISORDER
     Dosage: 80 MG (1 D), ORAL
     Route: 048
     Dates: start: 20041011, end: 20050310
  2. WELLBUTRIN SR [Concomitant]
  3. TEMAZEPAM [Concomitant]
  4. LEXAPRO [Concomitant]

REACTIONS (2)
  - ELECTROCARDIOGRAM QT PROLONGED [None]
  - SYNCOPE [None]
